FAERS Safety Report 4834874-7 (Version None)
Quarter: 2005Q4

REPORT INFORMATION
  Report Type: 
  Country: None (occurrence: None)
  Receive Date: 20051115
  Receipt Date: 20051101
  Transmission Date: 20060501
  Serious: Yes (Hospitalization)
  Sender: FDA-Public Use
  Company Number: GXKR2005US01906

PATIENT
  Age: 8 Month
  Sex: Female

DRUGS (7)
  1. CAPTOPRIL [Suspect]
     Indication: CARDIAC OPERATION
     Dosage: 0.1 MG/KG
  2. ASPIRIN [Concomitant]
  3. DIGOXIN [Concomitant]
  4. FUROSEMIDE [Concomitant]
  5. METOCLOPRAMIDE [Concomitant]
  6. OMEPRAZOLE [Concomitant]
  7. AMOXICILLIN [Concomitant]

REACTIONS (6)
  - DRUG HYPERSENSITIVITY [None]
  - FEEDING DISORDER OF INFANCY OR EARLY CHILDHOOD [None]
  - PULMONARY EOSINOPHILIA [None]
  - RHINORRHOEA [None]
  - URINE OUTPUT DECREASED [None]
  - WHITE BLOOD CELL COUNT INCREASED [None]
